FAERS Safety Report 7808818-X (Version None)
Quarter: 2011Q4

REPORT INFORMATION
  Report Type: 
  Country: None (occurrence: None)
  Receive Date: 20111012
  Receipt Date: 20111003
  Transmission Date: 20120403
  Serious: Yes (Other)
  Sender: FDA-Public Use
  Company Number: PHEH2009US02426

PATIENT
  Sex: Female
  Weight: 54.422 kg

DRUGS (6)
  1. GEMCITABINE HYDROCHLORIDE [Concomitant]
  2. VICODIN [Concomitant]
  3. TAXOTERE [Concomitant]
     Indication: BREAST CANCER
  4. ZOMETA [Suspect]
     Indication: METASTASES TO BONE
  5. ZOMETA [Suspect]
     Indication: NEOPLASM MALIGNANT
     Dates: start: 20050303
  6. DECADRON                                /NET/ [Concomitant]

REACTIONS (42)
  - NODULE [None]
  - TOOTH DISORDER [None]
  - ELECTROCARDIOGRAM ST SEGMENT ABNORMAL [None]
  - IMPLANT SITE SCAR [None]
  - OSTEONECROSIS OF JAW [None]
  - ORAL DISCOMFORT [None]
  - BONE DISORDER [None]
  - BIFASCICULAR BLOCK [None]
  - ARTERIOSCLEROSIS [None]
  - FISTULA [None]
  - OSTEITIS [None]
  - ORAL DISORDER [None]
  - JAW FRACTURE [None]
  - PHYSICAL DISABILITY [None]
  - INJURY [None]
  - DRY SKIN [None]
  - DERMATITIS [None]
  - INTERVERTEBRAL DISC DEGENERATION [None]
  - DYSGEUSIA [None]
  - OSTEOPENIA [None]
  - ANHEDONIA [None]
  - OSTEOSCLEROSIS [None]
  - SUBMANDIBULAR MASS [None]
  - ELECTROCARDIOGRAM QRS COMPLEX PROLONGED [None]
  - BUNDLE BRANCH BLOCK RIGHT [None]
  - SKIN PAPILLOMA [None]
  - PAIN [None]
  - ANXIETY [None]
  - BONE EROSION [None]
  - ULCER [None]
  - PAIN IN JAW [None]
  - DEFORMITY [None]
  - LIFE EXPECTANCY SHORTENED [None]
  - ACTINOMYCOSIS [None]
  - SUPRAVENTRICULAR EXTRASYSTOLES [None]
  - TENDONITIS [None]
  - DYSPHAGIA [None]
  - EMOTIONAL DISTRESS [None]
  - INFECTION [None]
  - SINUS BRADYCARDIA [None]
  - OEDEMA PERIPHERAL [None]
  - CHRONIC OBSTRUCTIVE PULMONARY DISEASE [None]
